FAERS Safety Report 21022795 (Version 2)
Quarter: 2022Q3

REPORT INFORMATION
  Report Type: Spontaneous
  Country: JP (occurrence: JP)
  Receive Date: 20220629
  Receipt Date: 20220814
  Transmission Date: 20221026
  Serious: Yes (Life-Threatening, Hospitalization, Other)
  Sender: FDA-Public Use
  Company Number: JP-ANIPHARMA-2022-JP-000256

PATIENT
  Age: 89 Year
  Sex: Male

DRUGS (6)
  1. CASODEX [Suspect]
     Active Substance: BICALUTAMIDE
     Indication: Prostate cancer
     Dosage: UNKNOWN FREQUENCY
     Route: 065
  2. ROXADUSTAT [Suspect]
     Active Substance: ROXADUSTAT
     Dosage: 50 MG TIWK / DOSE TEXT UNK, UNK, UNKNOWN FREQUENCY
     Route: 048
     Dates: start: 20210928
  3. BISOPROLOL [Concomitant]
     Active Substance: BISOPROLOL
     Dosage: 2.5 MG DAILY
     Route: 065
     Dates: start: 2019
  4. CARDENALIN [Concomitant]
     Active Substance: DOXAZOSIN MESYLATE
     Dosage: .5 MG DAILY
     Route: 065
     Dates: start: 2006
  5. FEBUXOSTAT [Concomitant]
     Active Substance: FEBUXOSTAT
     Dosage: 10 MG DAILY
     Route: 065
     Dates: start: 20200729
  6. PRAVASTATIN SODIUM [Concomitant]
     Active Substance: PRAVASTATIN SODIUM
     Dosage: 5 MG DAILY
     Route: 065
     Dates: start: 2016

REACTIONS (2)
  - Deep vein thrombosis [Unknown]
  - Pulmonary embolism [Unknown]

NARRATIVE: CASE EVENT DATE: 20220318
